FAERS Safety Report 12949706 (Version 1)
Quarter: 2016Q4

REPORT INFORMATION
  Report Type: Spontaneous
  Country: US (occurrence: US)
  Receive Date: 20161117
  Receipt Date: 20161117
  Transmission Date: 20170207
  Serious: Yes (Life-Threatening)
  Sender: FDA-Public Use
  Company Number: PHEH2016US029823

PATIENT
  Sex: Female

DRUGS (1)
  1. EXELON [Suspect]
     Active Substance: RIVASTIGMINE TARTRATE
     Indication: PRODUCT USED FOR UNKNOWN INDICATION
     Dosage: 9 MG, UNK
     Route: 048

REACTIONS (6)
  - Feeling abnormal [Unknown]
  - Dysstasia [Unknown]
  - Malaise [Unknown]
  - Syncope [Unknown]
  - Drug ineffective [Unknown]
  - Dyspepsia [Unknown]
